FAERS Safety Report 12769056 (Version 1)
Quarter: 2016Q3

REPORT INFORMATION
  Report Type: Spontaneous
  Country: BE (occurrence: BE)
  Receive Date: 20160921
  Receipt Date: 20160921
  Transmission Date: 20161109
  Serious: Yes (Other)
  Sender: FDA-Public Use
  Company Number: BE-ASTRAZENECA-2016SE99495

PATIENT
  Sex: Male

DRUGS (2)
  1. SEROQUEL [Suspect]
     Active Substance: QUETIAPINE FUMARATE
     Dosage: 300.0MG UNKNOWN
     Route: 048
  2. OTHER ANTIPSYCHOTICS [Concomitant]

REACTIONS (3)
  - Hyperventilation [Unknown]
  - Asthenia [Unknown]
  - Polyneuropathy [Recovering/Resolving]
